FAERS Safety Report 7797990-6 (Version None)
Quarter: 2011Q4

REPORT INFORMATION
  Report Type: 
  Country: None (occurrence: None)
  Receive Date: 20111005
  Receipt Date: 20110911
  Transmission Date: 20120403
  Serious: Yes (Death, Life-Threatening, Hospitalization)
  Sender: FDA-Public Use
  Company Number: MY-GLAXOSMITHKLINE-B0750874A

PATIENT
  Sex: Female
  Weight: 62 kg

DRUGS (3)
  1. ELTROMBOPAG [Suspect]
     Indication: IDIOPATHIC THROMBOCYTOPENIC PURPURA
     Route: 065
  2. PREDNISONE [Concomitant]
     Dosage: 5MG PER DAY
  3. CYCLOSPORINE [Concomitant]
     Dosage: 100MG TWICE PER DAY

REACTIONS (2)
  - HAEMORRHAGE INTRACRANIAL [None]
  - DEATH [None]
